FAERS Safety Report 6044242-0 (Version None)
Quarter: 2009Q1

REPORT INFORMATION
  Report Type: 
  Country: None (occurrence: None)
  Receive Date: 20090120
  Receipt Date: 20090112
  Transmission Date: 20090719
  Serious: Yes (Other)
  Sender: FDA-Public Use
  Company Number: US-MERCK-0702USA00315

PATIENT
  Age: 53 Year
  Sex: Female

DRUGS (2)
  1. FOSAMAX [Suspect]
     Indication: OSTEOPOROSIS
     Route: 048
     Dates: start: 20020501, end: 20060409
  2. PREMARIN [Concomitant]
     Indication: HORMONE THERAPY
     Route: 065
     Dates: start: 20010101, end: 20020101

REACTIONS (13)
  - ANXIETY [None]
  - BEREAVEMENT REACTION [None]
  - DEPRESSION [None]
  - EAR DISORDER [None]
  - GINGIVAL CYST [None]
  - MUSCLE STRAIN [None]
  - NECK INJURY [None]
  - OSTEONECROSIS [None]
  - OSTEORADIONECROSIS [None]
  - OTITIS EXTERNA [None]
  - PAROTITIS [None]
  - ROAD TRAFFIC ACCIDENT [None]
  - SEASONAL ALLERGY [None]
